FAERS Safety Report 7296598-9 (Version None)
Quarter: 2011Q1

REPORT INFORMATION
  Report Type: 
  Country: None (occurrence: None)
  Receive Date: 20110216
  Receipt Date: 20110208
  Transmission Date: 20110831
  Serious: Yes (Other)
  Sender: FDA-Public Use
  Company Number: PHHO2011AU02651

PATIENT
  Sex: Male

DRUGS (4)
  1. CO-DIOVAN [Suspect]
     Indication: HYPERTENSION
     Dosage: 160 / 25 MG
     Route: 048
  2. MONOPRIL [Concomitant]
  3. VALSARTAN [Suspect]
     Indication: HYPERTENSION
     Dosage: 80 MG, UNK
     Route: 048
  4. PHYSIOTENS ^GIULINI^ [Concomitant]

REACTIONS (5)
  - PRURITUS [None]
  - BLOOD PRESSURE INADEQUATELY CONTROLLED [None]
  - URTICARIA [None]
  - BLISTER [None]
  - SWELLING [None]
